FAERS Safety Report 18515678 (Version 1)
Quarter: 2020Q4

REPORT INFORMATION
  Report Type: Spontaneous
  Country: US (occurrence: US)
  Receive Date: 20201117
  Receipt Date: 20201117
  Transmission Date: 20210114
  Serious: No
  Sender: FDA-Public Use
  Company Number: None

PATIENT
  Age: 51 Year
  Sex: Female

DRUGS (4)
  1. CRESEMBA CAP 186 MG [Concomitant]
     Dates: start: 20200928
  2. OXYCOD/APAP TAB 5-3.25MG [Concomitant]
     Dates: start: 20201116
  3. SYMBICORT AER 160-4.5 [Concomitant]
     Dates: start: 20201013
  4. TYKERB [Suspect]
     Active Substance: LAPATINIB DITOSYLATE
     Indication: CHEMOTHERAPY
     Route: 048
     Dates: start: 20200922

REACTIONS (2)
  - Hepatic neoplasm [None]
  - Therapy interrupted [None]

NARRATIVE: CASE EVENT DATE: 20201116
